FAERS Safety Report 20654265 (Version 2)
Quarter: 2022Q2

REPORT INFORMATION
  Report Type: Report from Study
  Country: US (occurrence: US)
  Receive Date: 20220330
  Receipt Date: 20220518
  Transmission Date: 20220721
  Serious: No
  Sender: FDA-Public Use
  Company Number: US-BRISTOL-MYERS SQUIBB COMPANY-2022-011448

PATIENT
  Age: 63 Year
  Sex: Male
  Weight: 73.98 kg

DRUGS (1)
  1. POMALYST [Suspect]
     Active Substance: POMALIDOMIDE
     Indication: Illness

REACTIONS (3)
  - Product dose omission issue [Unknown]
  - Adverse event [Unknown]
  - Off label use [Unknown]
